FAERS Safety Report 4981956-5 (Version None)
Quarter: 2006Q2

REPORT INFORMATION
  Report Type: 
  Country: None (occurrence: None)
  Receive Date: 20060425
  Receipt Date: 20050913
  Transmission Date: 20061013
  Serious: Yes (Hospitalization, Disabling)
  Sender: FDA-Public Use
  Company Number: US-MERCK-0509USA01721

PATIENT
  Age: 42 Year
  Sex: Male
  Weight: 69 kg

DRUGS (1)
  1. VIOXX [Suspect]
     Indication: PAIN
     Route: 048
     Dates: start: 19991024, end: 20040101

REACTIONS (4)
  - ARTHROPATHY [None]
  - ASTHMA [None]
  - BACK DISORDER [None]
  - MYOCARDIAL INFARCTION [None]
